FAERS Safety Report 14304495 (Version 1)
Quarter: 2017Q4

REPORT INFORMATION
  Report Type: Spontaneous
  Country: JP (occurrence: JP)
  Receive Date: 20171219
  Receipt Date: 20171219
  Transmission Date: 20180321
  Serious: Yes (Hospitalization)
  Sender: FDA-Public Use
  Company Number: JP-OTSUKA-004967

PATIENT
  Age: 66 Year
  Sex: Male
  Weight: 58 kg

DRUGS (7)
  1. OPC-14597 [Suspect]
     Active Substance: CILOSTAZOL
     Indication: HALLUCINATION
     Dosage: 6 MG, BID
     Route: 048
     Dates: start: 20081001, end: 20081021
  2. OPC-14597 [Suspect]
     Active Substance: CILOSTAZOL
     Indication: SCHIZOPHRENIA
     Dosage: 3 MG, BID
     Route: 048
     Dates: start: 20080904, end: 20080930
  3. PALOLACTIN [Concomitant]
     Dosage: 2.5 MG, TID
     Route: 041
  4. BROMOCRIPTINE MESYLATE [Concomitant]
     Active Substance: BROMOCRIPTINE MESYLATE
     Dosage: FORMULATION-TABS
  5. LORAZEPAM. [Concomitant]
     Active Substance: LORAZEPAM
     Route: 048
  6. OPC-14597 [Suspect]
     Active Substance: CILOSTAZOL
     Indication: DELUSION
     Dosage: 6 MG, TID
     Route: 048
     Dates: start: 20081022, end: 20081029
  7. LORAZEPAM. [Concomitant]
     Active Substance: LORAZEPAM
     Dosage: FORMULATION-TABS

REACTIONS (4)
  - Tremor [Recovered/Resolved]
  - Muscle rigidity [Recovering/Resolving]
  - Blood creatine phosphokinase increased [Recovered/Resolved]
  - Myoglobin urine present [Recovered/Resolved]

NARRATIVE: CASE EVENT DATE: 20081028
